FAERS Safety Report 5477273-X (Version None)
Quarter: 2007Q4

REPORT INFORMATION
  Report Type: 
  Country: None (occurrence: None)
  Receive Date: 20071004
  Receipt Date: 20070925
  Transmission Date: 20080405
  Serious: Yes (Other)
  Sender: FDA-Public Use
  Company Number: US-PFIZER INC-2007055580

PATIENT
  Age: 56 Year
  Sex: Male
  Weight: 78.5 kg

DRUGS (3)
  1. CHANTIX [Suspect]
     Indication: SMOKING CESSATION THERAPY
     Route: 048
     Dates: start: 20061205, end: 20070104
  2. WARFARIN SODIUM [Concomitant]
     Route: 048
  3. LOVASTATIN [Concomitant]
     Route: 048

REACTIONS (8)
  - ABASIA [None]
  - BALANCE DISORDER [None]
  - DYSSTASIA [None]
  - HEAD DISCOMFORT [None]
  - LABYRINTHITIS [None]
  - TENSION HEADACHE [None]
  - VERTIGO [None]
  - VOMITING [None]
